FAERS Safety Report 6643310-X (Version None)
Quarter: 2010Q1

REPORT INFORMATION
  Report Type: 
  Country: None (occurrence: None)
  Receive Date: 20100319
  Receipt Date: 20100308
  Transmission Date: 20100710
  Serious: Yes (Death, Other)
  Sender: FDA-Public Use
  Company Number: US-ROCHE-690567

PATIENT
  Age: 61 Year
  Sex: Female

DRUGS (4)
  1. MYCOPHENOLATE MOFETIL [Suspect]
     Indication: GRAFT VERSUS HOST DISEASE
     Route: 065
  2. INFLIXIMAB [Suspect]
     Indication: GRAFT VERSUS HOST DISEASE
     Route: 065
  3. CYCLOSPORINE [Suspect]
     Indication: GRAFT VERSUS HOST DISEASE
     Route: 065
  4. LENALIDOMIDE [Concomitant]

REACTIONS (6)
  - CHOLESTASIS [None]
  - DIARRHOEA [None]
  - FALL [None]
  - RASH [None]
  - SEPSIS [None]
  - SUBDURAL HAEMATOMA [None]
